FAERS Safety Report 9198548 (Version 2)
Quarter: 2013Q2

REPORT INFORMATION
  Report Type: Spontaneous
  Country: KR (occurrence: KR)
  Receive Date: 20130329
  Receipt Date: 20130408
  Transmission Date: 20140414
  Serious: Yes (Hospitalization)
  Sender: FDA-Public Use
  Company Number: KR-ELI_LILLY_AND_COMPANY-KR201303006726

PATIENT
  Age: 47 Year
  Sex: Male

DRUGS (2)
  1. HUMALOG LISPRO [Suspect]
     Indication: TYPE 2 DIABETES MELLITUS
     Dosage: 5 U, TID
     Route: 058
     Dates: start: 201302, end: 20130311
  2. HUMALOG LISPRO [Suspect]
     Dosage: 4 U, TID

REACTIONS (2)
  - Hyperglycaemia [Recovering/Resolving]
  - Hypoglycaemia [Recovering/Resolving]
